FAERS Safety Report 8089663-X (Version None)
Quarter: 2012Q1

REPORT INFORMATION
  Report Type: 
  Country: None (occurrence: None)
  Receive Date: 20120128
  Receipt Date: 20110826
  Transmission Date: 20120608
  Serious: No
  Sender: FDA-Public Use
  Company Number: US-ABBOTT-11P-163-0835859-00

PATIENT
  Age: 48 Year
  Sex: Female

DRUGS (12)
  1. VITAMIN B COMPLEX CAP [Concomitant]
     Indication: PRODUCT USED FOR UNKNOWN INDICATION
  2. PRASTERONE [Concomitant]
     Indication: MEMORY IMPAIRMENT
  3. METFFORMIN HYDROCHLORIDE [Concomitant]
     Indication: DIABETES MELLITUS
     Dosage: 500 OR 1000 MG, DAILY
  4. KLONOPIN [Concomitant]
     Indication: BRAIN INJURY
  5. XANAX [Concomitant]
     Indication: PAIN
  6. PRISTIQ [Concomitant]
     Indication: BRAIN INJURY
  7. UNKNOWN PAIN MEDICATION [Concomitant]
     Indication: PRODUCT USED FOR UNKNOWN INDICATION
  8. FISH OIL [Concomitant]
     Indication: PRODUCT USED FOR UNKNOWN INDICATION
  9. HUMIRA [Suspect]
     Indication: PSORIASIS
     Dates: start: 20100201
  10. ACIDOPHILUS [Concomitant]
     Indication: PRODUCT USED FOR UNKNOWN INDICATION
  11. VITAMIN D [Concomitant]
     Indication: PRODUCT USED FOR UNKNOWN INDICATION
  12. MULTI-VITAMIN [Concomitant]
     Indication: PRODUCT USED FOR UNKNOWN INDICATION

REACTIONS (7)
  - SINUSITIS [None]
  - NASOPHARYNGITIS [None]
  - PARANASAL SINUS HYPERSECRETION [None]
  - PSORIASIS [None]
  - HYPERSENSITIVITY [None]
  - INJECTION SITE PAIN [None]
  - NASAL CONGESTION [None]
